FAERS Safety Report 9564806 (Version 1)
Quarter: 2013Q3

REPORT INFORMATION
  Report Type: Spontaneous
  Country: US (occurrence: US)
  Receive Date: 20130930
  Receipt Date: 20130930
  Transmission Date: 20140515
  Serious: Yes (Other)
  Sender: FDA-Public Use
  Company Number: US-BAYER-2013-116899

PATIENT
  Age: 52 Year
  Sex: Female

DRUGS (2)
  1. STIVARGA [Suspect]
     Indication: COLON CANCER METASTATIC
     Dosage: 120 MG, QD
     Route: 048
     Dates: start: 20130624, end: 20130916
  2. STIVARGA [Suspect]
     Indication: METASTASES TO LIVER

REACTIONS (1)
  - Tumour marker increased [None]
